FAERS Safety Report 7587261-5 (Version None)
Quarter: 2011Q3

REPORT INFORMATION
  Report Type: 
  Country: None (occurrence: None)
  Receive Date: 20110701
  Receipt Date: 20110622
  Transmission Date: 20111222
  Serious: Yes (Other)
  Sender: FDA-Public Use
  Company Number: BR-AMGEN-BRACT2011028711

PATIENT
  Age: 71 Year
  Sex: Male

DRUGS (1)
  1. DENOSUMAB [Suspect]
     Indication: METASTASES TO BONE
     Dosage: UNK
     Dates: start: 20100302, end: 20100526

REACTIONS (1)
  - OSTEONECROSIS [None]
